FAERS Safety Report 8300460-X (Version None)
Quarter: 2012Q2

REPORT INFORMATION
  Report Type: 
  Country: None (occurrence: None)
  Receive Date: 20120417
  Receipt Date: 20120403
  Transmission Date: 20120825
  Serious: Yes (Hospitalization)
  Sender: FDA-Public Use
  Company Number: 2012ST000345

PATIENT
  Age: 84 Year
  Sex: Male

DRUGS (2)
  1. MATULANE [Suspect]
     Indication: HODGKIN'S DISEASE
     Dosage: 200 MG;QOD;PO 150 MG;QOD;PO
     Route: 048
     Dates: start: 20120301
  2. MATULANE [Suspect]
     Indication: HODGKIN'S DISEASE
     Dosage: 200 MG;QOD;PO 150 MG;QOD;PO
     Route: 048
     Dates: start: 20120301

REACTIONS (1)
  - THROMBOSIS [None]
